FAERS Safety Report 5265321-1 (Version None)
Quarter: 2007Q1

REPORT INFORMATION
  Report Type: 
  Country: None (occurrence: None)
  Receive Date: 20070314
  Receipt Date: 20070305
  Transmission Date: 20070707
  Serious: Yes (Hospitalization)
  Sender: FDA-Public Use
  Company Number: DE-PFIZER INC-2006113772

PATIENT
  Sex: Male
  Weight: 85 kg

DRUGS (10)
  1. SU-011,248 [Suspect]
     Indication: METASTATIC RENAL CELL CARCINOMA
     Route: 048
     Dates: start: 20060524, end: 20060619
  2. SU-011,248 [Suspect]
     Route: 048
     Dates: start: 20060703, end: 20060801
  3. SU-011,248 [Suspect]
  4. NEXIUM [Concomitant]
     Route: 048
  5. ATORVASTATIN CALCIUM [Concomitant]
     Route: 048
  6. ALLOPURINOL [Concomitant]
     Route: 048
  7. NEBIVOLOL HCL [Concomitant]
     Route: 048
  8. LOPERAMIDE HCL [Concomitant]
     Route: 048
     Dates: start: 20060801
  9. TELMISARTAN [Concomitant]
     Route: 048
  10. SYMBICORT [Concomitant]
     Route: 045
     Dates: start: 19950101

REACTIONS (1)
  - OSTEOMYELITIS [None]
